FAERS Safety Report 9855417 (Version 3)
Quarter: 2014Q1

REPORT INFORMATION
  Report Type: Spontaneous
  Country: DE (occurrence: DE)
  Receive Date: 20140130
  Receipt Date: 20140324
  Transmission Date: 20141002
  Serious: Yes (Life-Threatening, Hospitalization, Other)
  Sender: FDA-Public Use
  Company Number: DE-JNJFOC-20130801080

PATIENT
  Age: 72 Year
  Sex: Female
  Weight: 93 kg

DRUGS (10)
  1. XARELTO [Suspect]
     Indication: PERIPHERAL ARTERIAL OCCLUSIVE DISEASE
     Route: 048
     Dates: start: 20130116, end: 20130705
  2. MARCUMAR [Suspect]
     Indication: PRODUCT USED FOR UNKNOWN INDICATION
     Route: 065
  3. GALVUS [Concomitant]
     Route: 065
  4. LANTUS [Concomitant]
     Route: 065
  5. GLIMEPIRIDE [Concomitant]
     Route: 065
  6. METOPROLOL [Concomitant]
     Route: 065
  7. PANTOZOL [Concomitant]
     Route: 065
  8. L-THYROXIN [Concomitant]
     Route: 065
  9. TORASEMID [Concomitant]
     Dosage: 30
     Route: 065
  10. WARFARIN [Concomitant]
     Route: 065

REACTIONS (10)
  - Haemorrhage [Unknown]
  - Pharyngeal haemorrhage [Recovered/Resolved]
  - Obstructive airways disorder [Recovered/Resolved]
  - Gastrointestinal obstruction [Recovered/Resolved]
  - Coagulopathy [Unknown]
  - Intestinal haemorrhage [Unknown]
  - Abdominal wall haemorrhage [Unknown]
  - Haemorrhage [Unknown]
  - International normalised ratio fluctuation [Unknown]
  - Off label use [Unknown]
